FAERS Safety Report 8830199 (Version 1)
Quarter: 2012Q4

REPORT INFORMATION
  Report Type: 
  Country: DE (occurrence: DE)
  Receive Date: 20121008
  Receipt Date: 20121008
  Transmission Date: 20130627
  Serious: No
  Sender: FDA-Public Use
  Company Number: DE-JNJFOC-20120911084

PATIENT
  Sex: Male

DRUGS (1)
  1. DUROGESIC SMAT [Suspect]
     Indication: PRODUCT USED FOR UNKNOWN INDICATION
     Dosage: 2X25ug/hr
     Route: 062

REACTIONS (1)
  - Wrong technique in drug usage process [Unknown]
